FAERS Safety Report 7826349 (Version 3)
Quarter: 2013Q2

REPORT INFORMATION
  Report Type: Report from Study
  Country: NL (occurrence: NL)
  Receive Date: 20110224
  Receipt Date: 20130419
  Transmission Date: 20140414
  Serious: Yes (Death)
  Sender: FDA-Public Use
  Company Number: NL-ABBOTT-11P-114-0707247-00

PATIENT
  Age: 81 Year
  Sex: Female

DRUGS (15)
  1. HUMIRA 40 MG/0.8 ML PEN [Suspect]
     Indication: RHEUMATOID ARTHRITIS
     Route: 058
     Dates: start: 201102
  2. CALCIUM CARBONATE W/COLECALCIFEROL [Concomitant]
     Indication: PRODUCT USED FOR UNKNOWN INDICATION
     Dosage: 2.5G/880 IU
  3. FLUPENTIXOL [Concomitant]
     Indication: PRODUCT USED FOR UNKNOWN INDICATION
  4. FOLIC ACID [Concomitant]
     Indication: PRODUCT USED FOR UNKNOWN INDICATION
  5. FUROSEMIDE [Concomitant]
     Indication: PRODUCT USED FOR UNKNOWN INDICATION
  6. HALOPERIDOL [Concomitant]
     Indication: PRODUCT USED FOR UNKNOWN INDICATION
  7. LACTULOSE [Concomitant]
     Indication: PRODUCT USED FOR UNKNOWN INDICATION
     Dosage: 670MG/ML (500MG/G)
  8. LERCANINIDIPINE [Concomitant]
     Indication: PRODUCT USED FOR UNKNOWN INDICATION
  9. MACROGOL/SALT POWDER [Concomitant]
     Indication: PRODUCT USED FOR UNKNOWN INDICATION
  10. OMEPRAZOL [Concomitant]
     Indication: PRODUCT USED FOR UNKNOWN INDICATION
  11. PARACETAMOL [Concomitant]
     Indication: PRODUCT USED FOR UNKNOWN INDICATION
  12. PERINDOPRIL [Concomitant]
     Indication: PRODUCT USED FOR UNKNOWN INDICATION
  13. PREDNISON [Concomitant]
     Indication: PRODUCT USED FOR UNKNOWN INDICATION
  14. RISEDRONIC [Concomitant]
     Indication: PRODUCT USED FOR UNKNOWN INDICATION
  15. TRAMADOL [Concomitant]
     Indication: PRODUCT USED FOR UNKNOWN INDICATION

REACTIONS (1)
  - Death [Fatal]
